FAERS Safety Report 24964653 (Version 1)
Quarter: 2025Q1

REPORT INFORMATION
  Report Type: Spontaneous
  Country: HU (occurrence: HU)
  Receive Date: 20250213
  Receipt Date: 20250213
  Transmission Date: 20250408
  Serious: Yes (Other)
  Sender: JOHNSON AND JOHNSON
  Company Number: HU-JNJFOC-20250206244

PATIENT

DRUGS (1)
  1. ERLEADA [Suspect]
     Active Substance: APALUTAMIDE
     Indication: Hormone-dependent prostate cancer
     Route: 065

REACTIONS (5)
  - Seizure [Unknown]
  - Syncope [Unknown]
  - Malaise [Unknown]
  - Weight decreased [Unknown]
  - General physical condition abnormal [Unknown]
